FAERS Safety Report 5754461-6 (Version None)
Quarter: 2008Q2

REPORT INFORMATION
  Report Type: 
  Country: None (occurrence: None)
  Receive Date: 20080530
  Receipt Date: 20071210
  Transmission Date: 20081010
  Serious: No
  Sender: FDA-Public Use
  Company Number: US-BOEHRINGER INGELHEIM GMBH, GERMANY-2006-BP-03804BP

PATIENT
  Sex: Female

DRUGS (42)
  1. MIRAPEX [Suspect]
     Indication: RESTLESS LEGS SYNDROME
     Route: 048
     Dates: start: 20040414, end: 20060201
  2. PREMARIN [Concomitant]
     Route: 048
  3. PLAQUENIL [Concomitant]
     Indication: SYSTEMIC LUPUS ERYTHEMATOSUS
     Route: 048
     Dates: start: 20031118, end: 20050101
  4. IBUROFEN [Concomitant]
     Route: 048
     Dates: start: 20040115
  5. HYDROCORTISONE [Concomitant]
     Dates: start: 20031107
  6. ELAVIL [Concomitant]
     Indication: PROPHYLAXIS
     Route: 048
     Dates: start: 20040115
  7. DARVOCET-N 100 [Concomitant]
     Route: 048
     Dates: start: 20040609
  8. TRIAMCINOLONE ACETONIDE, TOPICAL [Concomitant]
     Route: 061
     Dates: start: 20031128
  9. DERMATOP [Concomitant]
     Dates: start: 20031112
  10. LOPROX [Concomitant]
     Dates: start: 20031107
  11. ACTONEL [Concomitant]
     Route: 048
     Dates: end: 20040101
  12. ERYTHROMYCIN [Concomitant]
     Dates: start: 20031107
  13. SLOW FE [Concomitant]
     Route: 048
     Dates: start: 20040115
  14. PRILOSEC [Concomitant]
     Route: 048
  15. VIOXX [Concomitant]
     Route: 048
     Dates: start: 20040701, end: 20040902
  16. AMBIEN [Concomitant]
     Route: 048
     Dates: start: 20031028
  17. DOXYCYCLINE HYDRATE [Concomitant]
     Route: 048
     Dates: start: 20041022
  18. SUDAFED 12 HOUR [Concomitant]
     Route: 048
     Dates: start: 20041022
  19. ZITHROMAX [Concomitant]
     Dates: start: 20041203
  20. DIFLUCAN [Concomitant]
     Dates: start: 20041201
  21. DIFLUCAN [Concomitant]
     Dates: start: 20050209
  22. BEXTRA [Concomitant]
     Route: 048
     Dates: start: 20040902
  23. BACTROBAN NASAL [Concomitant]
     Route: 045
     Dates: start: 20041118
  24. VOSOL HC [Concomitant]
     Dates: start: 20041022
  25. LEVAQUIN [Concomitant]
     Indication: BRONCHITIS
     Route: 048
     Dates: start: 20040428
  26. HYTONE [Concomitant]
     Dates: start: 20041213
  27. RHINOCORT [Concomitant]
     Indication: SINUSITIS
     Dates: start: 20041220
  28. RHINOCORT [Concomitant]
     Indication: RHINITIS ALLERGIC
  29. PHENERGAN VC/CODEINE [Concomitant]
     Route: 048
     Dates: start: 20041220
  30. XANAX [Concomitant]
     Indication: PANIC DISORDER
     Dates: start: 20050616
  31. ETODOLAC [Concomitant]
     Route: 048
     Dates: start: 20050525
  32. LISINOPRIL HYDROCHLORTHIAZID [Concomitant]
     Route: 048
     Dates: start: 20050620, end: 20060101
  33. CAPEX [Concomitant]
     Dates: start: 20050101
  34. FLONASE [Concomitant]
     Dates: start: 20050526
  35. ALLEGRA [Concomitant]
     Route: 048
  36. NEXIUM [Concomitant]
     Route: 048
     Dates: start: 20051214
  37. MAXZIDE-25 [Concomitant]
     Route: 048
     Dates: start: 20050326
  38. NASAREL [Concomitant]
     Dates: start: 20060303
  39. EFFEXOR XR [Concomitant]
     Route: 048
     Dates: start: 20060115
  40. NASONEX [Concomitant]
     Indication: EUSTACHIAN TUBE DYSFUNCTION
     Dates: start: 20050316
  41. LORAZEPAM [Concomitant]
     Indication: ANXIETY
     Route: 048
     Dates: start: 20051221
  42. ACE INHIBITOR [Concomitant]
     Indication: HYPERTENSION

REACTIONS (8)
  - BRONCHITIS [None]
  - EUSTACHIAN TUBE DYSFUNCTION [None]
  - OTITIS MEDIA ACUTE [None]
  - PATHOLOGICAL GAMBLING [None]
  - PHARYNGITIS [None]
  - PSYCHIATRIC SYMPTOM [None]
  - RHINITIS ALLERGIC [None]
  - TRACHEITIS [None]
